FAERS Safety Report 11090062 (Version 1)
Quarter: 2015Q2

REPORT INFORMATION
  Report Type: Report from Study
  Country: NO (occurrence: NO)
  Receive Date: 20150505
  Receipt Date: 20150505
  Transmission Date: 20150821
  Serious: Yes (Other)
  Sender: FDA-Public Use
  Company Number: NO-BAYER-2015-153344

PATIENT
  Age: 41 Year
  Sex: Female

DRUGS (1)
  1. JAYDESS [Suspect]
     Active Substance: LEVONORGESTREL
     Indication: CONTRACEPTION
     Dosage: 14 MCG/24HR, CONT
     Route: 015
     Dates: start: 20150415, end: 20150415

REACTIONS (6)
  - Procedural pain [None]
  - Device difficult to use [None]
  - Device deployment issue [None]
  - Procedural haemorrhage [Recovered/Resolved]
  - Discomfort [Recovered/Resolved]
  - Complication of device insertion [None]

NARRATIVE: CASE EVENT DATE: 20150415
